FAERS Safety Report 4801476-8 (Version None)
Quarter: 2005Q4

REPORT INFORMATION
  Report Type: 
  Country: None (occurrence: None)
  Receive Date: 20051018
  Receipt Date: 20051006
  Transmission Date: 20060501
  Serious: Yes (Other)
  Sender: FDA-Public Use
  Company Number: US-JNJFOC-20051001451

PATIENT

DRUGS (7)
  1. INFLIXIMAB [Suspect]
     Indication: RHEUMATOID ARTHRITIS
     Route: 042
  2. METHOTREXATE [Concomitant]
  3. FOLIC ACID [Concomitant]
  4. TYLENOL (CAPLET) [Concomitant]
  5. MOBIC [Concomitant]
  6. ANTIARRHYTHMICS [Concomitant]
  7. ANTI-HYPERTENSIVE [Concomitant]

REACTIONS (1)
  - BASAL CELL CARCINOMA [None]
